FAERS Safety Report 4342683-0 (Version None)
Quarter: 2004Q1

REPORT INFORMATION
  Report Type: 
  Country: None (occurrence: None)
  Receive Date: 20040329
  Receipt Date: 20031211
  Transmission Date: 20041129
  Serious: No
  Sender: FDA-Public Use
  Company Number: USA031152815

PATIENT
  Age: 14 Year
  Sex: Female

DRUGS (3)
  1. STRATTERA [Suspect]
     Indication: ATTENTION DEFICIT/HYPERACTIVITY DISORDER
     Dosage: 160 MG/DAY
  2. ADIPEX [Concomitant]
  3. DITROPAN [Concomitant]

REACTIONS (4)
  - DRUG INTERACTION [None]
  - HYPERTENSION [None]
  - PRESCRIBED OVERDOSE [None]
  - TACHYCARDIA [None]
